FAERS Safety Report 17874692 (Version 1)
Quarter: 2020Q2

REPORT INFORMATION
  Report Type: Spontaneous
  Country: US (occurrence: US)
  Receive Date: 20200608
  Receipt Date: 20200608
  Transmission Date: 20200714
  Serious: Yes (Hospitalization)
  Sender: FDA-Public Use
  Company Number: None

PATIENT
  Sex: Male

DRUGS (8)
  1. NIFEDIPINE. [Concomitant]
     Active Substance: NIFEDIPINE
  2. BUPROPN HCL [Concomitant]
     Active Substance: BUPROPION HYDROCHLORIDE
  3. DULOXETINE. [Concomitant]
     Active Substance: DULOXETINE
  4. ENBREL [Suspect]
     Active Substance: ETANERCEPT
     Indication: ARTHRITIS
     Dosage: 1 PEN QWK SQ
     Route: 058
     Dates: start: 20160412
  5. ATROVASTATIN [Concomitant]
     Active Substance: ATORVASTATIN CALCIUM
  6. IRBESARTAN. [Concomitant]
     Active Substance: IRBESARTAN
  7. NABUMETONE. [Concomitant]
     Active Substance: NABUMETONE
  8. PANTOPRAZOLE [Concomitant]
     Active Substance: PANTOPRAZOLE

REACTIONS (2)
  - Therapy interrupted [None]
  - Malaise [None]
